FAERS Safety Report 4631657-8 (Version None)
Quarter: 2005Q2

REPORT INFORMATION
  Report Type: 
  Country: None (occurrence: None)
  Receive Date: 20050407
  Receipt Date: 20050323
  Transmission Date: 20051028
  Serious: Yes (Disabling)
  Sender: FDA-Public Use
  Company Number: 2005S1001483

PATIENT
  Age: 65 Year
  Sex: Female

DRUGS (5)
  1. APOKYN [Suspect]
     Indication: PARKINSON'S DISEASE
     Dosage: 70 MG; QD; SC
     Route: 058
  2. CARBIDOPA AND LEVODOPA [Concomitant]
  3. CABERGOLINE [Concomitant]
  4. ATENOLOL [Concomitant]
  5. EPILM [Concomitant]

REACTIONS (1)
  - THROMBOCYTOPENIA [None]
